FAERS Safety Report 17202594 (Version 3)
Quarter: 2020Q1

REPORT INFORMATION
  Report Type: Report from Study
  Country: US (occurrence: US)
  Receive Date: 20191226
  Receipt Date: 20200207
  Transmission Date: 20200409
  Serious: Yes (Hospitalization)
  Sender: FDA-Public Use
  Company Number: US-TAIHO ONCOLOGY  INC-EU-2019-04317

PATIENT
  Age: 68 Year
  Sex: Female
  Weight: 99.88 kg

DRUGS (7)
  1. LONSURF [Suspect]
     Active Substance: TIPIRACIL HYDROCHLORIDE\TRIFLURIDINE
     Indication: COLON CANCER
     Dosage: CURRENT CYCLE UNKNOWN
     Route: 048
     Dates: end: 20191211
  2. LOSARTAN/HCT [Concomitant]
     Active Substance: HYDROCHLOROTHIAZIDE\LOSARTAN POTASSIUM
     Dosage: NI
  3. LYRICA [Concomitant]
     Active Substance: PREGABALIN
     Dosage: NI
  4. OXYCODONE [Concomitant]
     Active Substance: OXYCODONE
     Dosage: NI
  5. METFORMIN [Concomitant]
     Active Substance: METFORMIN HYDROCHLORIDE
     Dosage: NI
  6. LOVENOX [Concomitant]
     Active Substance: ENOXAPARIN SODIUM
     Dosage: NI
  7. LONSURF [Suspect]
     Active Substance: TIPIRACIL HYDROCHLORIDE\TRIFLURIDINE
     Indication: RECTOSIGMOID CANCER
     Dosage: CURRENT CYCLE UNKNOWN
     Route: 048
     Dates: start: 20190928

REACTIONS (3)
  - Post procedural complication [Unknown]
  - Neoplasm malignant [Unknown]
  - Hernia repair [Not Recovered/Not Resolved]

NARRATIVE: CASE EVENT DATE: 20191211
